FAERS Safety Report 9409592 (Version 2)
Quarter: 2013Q3

REPORT INFORMATION
  Report Type: Spontaneous
  Country: US (occurrence: US)
  Receive Date: 20130719
  Receipt Date: 20130925
  Transmission Date: 20140515
  Serious: Yes (Other)
  Sender: FDA-Public Use
  Company Number: PHEH2013US014941

PATIENT
  Sex: Male
  Weight: 100 kg

DRUGS (2)
  1. TEGRETOL-XR [Suspect]
     Dosage: 400 MG, BID
     Route: 048
  2. CITALOPRAM [Concomitant]
     Dosage: UNK UKN, UNK

REACTIONS (5)
  - Brain neoplasm [Unknown]
  - Neoplasm [Unknown]
  - Tumour rupture [Unknown]
  - Amnesia [Unknown]
  - Astrocytoma [Recovered/Resolved]
